FAERS Safety Report 11999645 (Version 4)
Quarter: 2016Q2

REPORT INFORMATION
  Report Type: Report from Study
  Country: US (occurrence: US)
  Receive Date: 20160204
  Receipt Date: 20160502
  Transmission Date: 20160815
  Serious: No
  Sender: FDA-Public Use
  Company Number: US-AMGEN-USASL2016010950

PATIENT
  Age: 71 Year
  Sex: Female

DRUGS (1)
  1. ENBREL [Suspect]
     Active Substance: ETANERCEPT
     Indication: PSORIATIC ARTHROPATHY
     Dosage: 50 MG, QWK
     Route: 065
     Dates: start: 2014

REACTIONS (7)
  - Feeling abnormal [Unknown]
  - Influenza [Unknown]
  - Chest pain [Unknown]
  - Sinus congestion [Recovered/Resolved]
  - Sputum discoloured [Unknown]
  - Cough [Unknown]
  - Bone pain [Unknown]

NARRATIVE: CASE EVENT DATE: 20160122
